FAERS Safety Report 17193499 (Version 2)
Quarter: 2020Q1

REPORT INFORMATION
  Report Type: Report from Study
  Country: US (occurrence: US)
  Receive Date: 20191223
  Receipt Date: 20200114
  Transmission Date: 20200409
  Serious: Yes (Hospitalization)
  Sender: FDA-Public Use
  Company Number: US-BAUSCH-BL-2019-065627

PATIENT
  Sex: Male
  Weight: 145.28 kg

DRUGS (2)
  1. XIFAXAN [Suspect]
     Active Substance: RIFAXIMIN
     Indication: LIVER DISORDER
     Dosage: STARTED FEB/2019 OR MAR/2019, END DATE: SOME TIME AFTER AUG/2019
     Route: 048
     Dates: start: 2019, end: 2019
  2. XIFAXAN [Suspect]
     Active Substance: RIFAXIMIN
     Dosage: STARTED DURING HOSPITALIZATION
     Route: 048
     Dates: start: 2019

REACTIONS (3)
  - Therapy cessation [Unknown]
  - Skin discolouration [Unknown]
  - Haemoglobin decreased [Unknown]

NARRATIVE: CASE EVENT DATE: 2019
